FAERS Safety Report 7094427-X (Version None)
Quarter: 2010Q4

REPORT INFORMATION
  Report Type: 
  Country: None (occurrence: None)
  Receive Date: 20101110
  Receipt Date: 20101027
  Transmission Date: 20110411
  Serious: Yes (Other)
  Sender: FDA-Public Use
  Company Number: PHHY2010BR72859

PATIENT
  Sex: Female

DRUGS (1)
  1. TRILEPTAL [Suspect]
     Dosage: HALF TABLET IN THE MORNING AND HALF TABLET AT NIGHT
     Route: 048

REACTIONS (6)
  - ASTHENIA [None]
  - DERMATITIS BULLOUS [None]
  - FEELING HOT [None]
  - OROPHARYNGEAL PAIN [None]
  - PAIN [None]
  - PHARYNGEAL MASS [None]
